FAERS Safety Report 17571420 (Version 1)
Quarter: 2020Q1

REPORT INFORMATION
  Report Type: Spontaneous
  Country: US (occurrence: US)
  Receive Date: 20200320
  Receipt Date: 20200320
  Transmission Date: 20200409
  Serious: Yes (Life-Threatening, Hospitalization, Disabling)
  Sender: FDA-Public Use
  Company Number: None

PATIENT
  Age: 44 Year
  Sex: Female
  Weight: 65.77 kg

DRUGS (2)
  1. LIDOCAINE. [Suspect]
     Active Substance: LIDOCAINE
  2. ELECTROCONVULSIVE THERAPY DEVICE THYMATRON SYSTEM IV AND MECTA SR2 [Suspect]
     Active Substance: DEVICE

REACTIONS (17)
  - Altered state of consciousness [None]
  - Fatigue [None]
  - Syncope [None]
  - Diaphragmatic paralysis [None]
  - Hemiplegia [None]
  - Retching [None]
  - Ataxia [None]
  - Dysphagia [None]
  - Dysarthria [None]
  - Dizziness [None]
  - Respiratory distress [None]
  - Hemiparesis [None]
  - Dystonia [None]
  - Arrhythmia [None]
  - Seizure [None]
  - Muscular weakness [None]
  - Electric injury [None]

NARRATIVE: CASE EVENT DATE: 20100726
